FAERS Safety Report 24403779 (Version 1)
Quarter: 2024Q4

REPORT INFORMATION
  Report Type: Spontaneous
  Country: US (occurrence: US)
  Receive Date: 20241007
  Receipt Date: 20241007
  Transmission Date: 20250115
  Serious: No
  Sender: RANBAXY
  Company Number: US-SUN PHARMACEUTICAL INDUSTRIES LTD-2024R1-454509

PATIENT
  Age: 77 Year
  Sex: Female

DRUGS (1)
  1. CEQUA [Interacting]
     Active Substance: CYCLOSPORINE
     Indication: Product used for unknown indication
     Dosage: UNK
     Route: 047
     Dates: end: 20240530

REACTIONS (4)
  - Drug-disease interaction [Unknown]
  - Eye pain [Unknown]
  - Condition aggravated [Unknown]
  - Therapy cessation [Unknown]

NARRATIVE: CASE EVENT DATE: 20240528
